FAERS Safety Report 9834794 (Version 1)
Quarter: 2014Q1

REPORT INFORMATION
  Report Type: Spontaneous
  Country: EC (occurrence: EC)
  Receive Date: 20140122
  Receipt Date: 20140122
  Transmission Date: 20141002
  Serious: Yes (Death)
  Sender: FDA-Public Use
  Company Number: EC-PFIZER INC-2014017019

PATIENT
  Age: 73 Year
  Sex: Male

DRUGS (1)
  1. LIPITOR [Suspect]
     Dosage: 20 MG, UNK
     Route: 048

REACTIONS (1)
  - Death [Fatal]
